FAERS Safety Report 10368767 (Version 1)
Quarter: 2014Q3

REPORT INFORMATION
  Report Type: Spontaneous
  Country: US (occurrence: US)
  Receive Date: 20140807
  Receipt Date: 20140807
  Transmission Date: 20150326
  Serious: Yes (Other)
  Sender: FDA-Public Use
  Company Number: US-MYLANLABS-2014M1000349

PATIENT

DRUGS (4)
  1. DILTIAZEM [Suspect]
     Active Substance: DILTIAZEM
     Indication: OVERDOSE
     Route: 048
  2. VALSARTAN. [Suspect]
     Active Substance: VALSARTAN
     Indication: OFF LABEL USE
  3. VALSARTAN. [Suspect]
     Active Substance: VALSARTAN
     Indication: OVERDOSE
     Route: 048
  4. DILTIAZEM [Suspect]
     Active Substance: DILTIAZEM
     Indication: OFF LABEL USE

REACTIONS (6)
  - Unresponsive to stimuli [Unknown]
  - Overdose [None]
  - Bradycardia [Unknown]
  - Hypotension [Unknown]
  - Overdose [Recovered/Resolved]
  - Off label use [None]
